FAERS Safety Report 8961465 (Version 1)
Quarter: 2012Q4

REPORT INFORMATION
  Report Type: 
  Country: US (occurrence: US)
  Receive Date: 20121212
  Receipt Date: 20121212
  Transmission Date: 20130627
  Serious: No
  Sender: FDA-Public Use
  Company Number: US-VERTEX PHARMACEUTICALS INC.-2012-025994

PATIENT

DRUGS (3)
  1. INCIVEK [Suspect]
     Indication: HEPATITIS C
     Route: 048
  2. PEGYLATED INTERFERON ALFA-2A [Suspect]
     Route: 058
  3. RIBAVIRIN [Suspect]
     Route: 048

REACTIONS (1)
  - Drug ineffective [Unknown]
